FAERS Safety Report 5323707-0 (Version None)
Quarter: 2007Q2

REPORT INFORMATION
  Report Type: 
  Country: None (occurrence: None)
  Receive Date: 20070514
  Receipt Date: 20070503
  Transmission Date: 20071010
  Serious: Yes (Other)
  Sender: FDA-Public Use
  Company Number: US-ROCHE-479329

PATIENT
  Age: 62 Year
  Sex: Male

DRUGS (3)
  1. COPEGUS [Suspect]
     Indication: HEPATITIS C
     Route: 048
     Dates: start: 20050901, end: 20060701
  2. RIBAVIRIN [Suspect]
     Indication: HEPATITIS C
     Route: 048
     Dates: start: 20050715, end: 20050915
  3. INTRON A [Concomitant]
     Route: 058
     Dates: start: 20050701, end: 20060701

REACTIONS (10)
  - ACANTHOLYSIS [None]
  - ACNE [None]
  - BLISTER [None]
  - DISCOMFORT [None]
  - PAIN [None]
  - PRURITUS [None]
  - RASH GENERALISED [None]
  - SKIN DISORDER [None]
  - SLEEP DISORDER [None]
  - SWELLING [None]
